FAERS Safety Report 5611534-6 (Version None)
Quarter: 2008Q1

REPORT INFORMATION
  Report Type: 
  Country: None (occurrence: None)
  Receive Date: 20080201
  Receipt Date: 20080109
  Transmission Date: 20080703
  Serious: No
  Sender: FDA-Public Use
  Company Number: US-BOEHRINGER INGELHEIM GMBH, GERMANY-2007-BP-25429BP

PATIENT
  Age: 34 Year
  Sex: Female
  Weight: 80 kg

DRUGS (5)
  1. MIRAPEX [Suspect]
     Indication: RESTLESS LEGS SYNDROME
     Route: 048
     Dates: start: 20071023, end: 20071115
  2. EFFEXOR XR [Concomitant]
     Route: 048
  3. LISINOPRIL [Concomitant]
  4. OXYBUTANIN [Concomitant]
  5. PREVACID [Concomitant]

REACTIONS (1)
  - DIARRHOEA [None]
